FAERS Safety Report 8144941-0 (Version None)
Quarter: 2012Q1

REPORT INFORMATION
  Report Type: 
  Country: None (occurrence: None)
  Receive Date: 20120217
  Receipt Date: 20120206
  Transmission Date: 20120608
  Serious: Yes (Disabling)
  Sender: FDA-Public Use
  Company Number: US-MERCK-1202USA00963

PATIENT

DRUGS (2)
  1. ZOCOR [Suspect]
     Route: 048
  2. STATIN (UNSPECIFIED) [Suspect]
     Route: 065

REACTIONS (3)
  - ARTHRALGIA [None]
  - ADVERSE EVENT [None]
  - PAIN [None]
